FAERS Safety Report 12391568 (Version 1)
Quarter: 2016Q2

REPORT INFORMATION
  Report Type: Spontaneous
  Country: FI (occurrence: FI)
  Receive Date: 20160521
  Receipt Date: 20160521
  Transmission Date: 20160815
  Serious: Yes (Life-Threatening, Other)
  Sender: FDA-Public Use
  Company Number: FI-ACCORD-040176

PATIENT
  Age: 65 Year
  Sex: Female
  Weight: 87 kg

DRUGS (9)
  1. GRANISETRON [Concomitant]
     Active Substance: GRANISETRON
     Dosage: STRENGTH: 1 MG
     Route: 042
  2. EMCONCOR [Concomitant]
     Active Substance: BISOPROLOL FUMARATE
     Indication: HYPERTENSION
     Route: 048
     Dates: start: 20160222
  3. PREDNISONE. [Concomitant]
     Active Substance: PREDNISONE
     Dosage: STRENGTH: 120 MG?IN THE EVENING BEFORE AND IN THE MORNING OF THE TREATMENT DAY
     Route: 048
  4. ATOSIL [Concomitant]
     Active Substance: PROMETHAZINE HYDROCHLORIDE
     Dosage: STRENGTH: 50 MG
     Route: 030
  5. ORADEXON [Concomitant]
     Active Substance: DEXAMETHASONE
     Dosage: STRENGTH: 10 MG
     Route: 042
  6. INNOHEP [Concomitant]
     Active Substance: TINZAPARIN SODIUM
     Indication: PULMONARY EMBOLISM
     Route: 058
     Dates: start: 20160402
  7. ZOCOR [Concomitant]
     Active Substance: SIMVASTATIN
     Indication: HYPERCHOLESTEROLAEMIA
     Route: 048
     Dates: start: 20160222
  8. RANITIDINE. [Concomitant]
     Active Substance: RANITIDINE
     Dosage: STRENGTH: 50 MG
     Route: 042
  9. PACLITAXEL ACCORD [Suspect]
     Active Substance: PACLITAXEL
     Indication: OVARIAN CANCER
     Dosage: STRENGTH: 6 MG/ML (50 ML)?1ST CYCLE 3 WEEKS
     Dates: start: 20160413, end: 20160413

REACTIONS (2)
  - Seizure [Recovered/Resolved]
  - Erythema [Recovered/Resolved]

NARRATIVE: CASE EVENT DATE: 20160413
